FAERS Safety Report 17584053 (Version 3)
Quarter: 2020Q3

REPORT INFORMATION
  Report Type: Spontaneous
  Country: JP (occurrence: JP)
  Receive Date: 20200326
  Receipt Date: 20200916
  Transmission Date: 20201102
  Serious: Yes (Death, Hospitalization, Other)
  Sender: FDA-Public Use
  Company Number: JP-009507513-2002JPN002635J

PATIENT
  Age: 71 Year
  Sex: Male
  Weight: 76 kg

DRUGS (11)
  1. DISOPYRAMIDE [Concomitant]
     Active Substance: DISOPYRAMIDE
     Indication: ARRHYTHMIA
     Dosage: 150 MILLIGRAM, QD
     Route: 048
     Dates: end: 20200226
  2. KEYTRUDA [Suspect]
     Active Substance: PEMBROLIZUMAB
     Indication: SQUAMOUS CELL CARCINOMA OF LUNG
     Dosage: 200 MILLIGRAM, Q3W
     Route: 041
     Dates: start: 20200115, end: 20200207
  3. CARBOPLATIN. [Suspect]
     Active Substance: CARBOPLATIN
     Indication: SQUAMOUS CELL CARCINOMA OF LUNG
     Dosage: 275 MILLIGRAM, Q3W
     Route: 041
     Dates: start: 20200115, end: 20200207
  4. MAGNESIUM (UNSPECIFIED) [Concomitant]
     Active Substance: MAGNESIUM
     Indication: CONSTIPATION
     Dosage: 500 MILLIGRAM, BID
     Route: 048
     Dates: start: 20200116, end: 20200226
  5. ABRAXANE [Suspect]
     Active Substance: PACLITAXEL
     Indication: SQUAMOUS CELL CARCINOMA OF LUNG
     Dosage: 130 MILLIGRAM, QW
     Route: 041
     Dates: start: 20200115, end: 20200207
  6. VESICARE [Concomitant]
     Active Substance: SOLIFENACIN SUCCINATE
     Indication: HYPERTONIC BLADDER
     Dosage: 5 MILLIGRAM, QD
     Route: 048
     Dates: end: 20200226
  7. TAZOPIPE [Concomitant]
     Active Substance: PIPERACILLIN SODIUM\TAZOBACTAM SODIUM
     Dosage: 4.5 GRAM
     Route: 042
     Dates: start: 20200214, end: 20200225
  8. AMBROXOL HYDROCHLORIDE L [Concomitant]
     Active Substance: AMBROXOL HYDROCHLORIDE
     Indication: EMPHYSEMA
     Dosage: 45 MILLIGRAM, QD
     Route: 048
     Dates: end: 20200226
  9. CARVEDILOL. [Concomitant]
     Active Substance: CARVEDILOL
     Indication: ARRHYTHMIA
     Dosage: 1.25 MILLIGRAM, QD
     Route: 048
     Dates: end: 20200226
  10. CARBAZOCHROME SULFONATE NA [Concomitant]
     Indication: RESPIRATORY TRACT HAEMORRHAGE
     Dosage: 10 MILLIGRAM, TID
     Route: 048
     Dates: start: 20200204, end: 20200214
  11. TRANEXAMIC ACID C [Concomitant]
     Active Substance: TRANEXAMIC ACID
     Indication: RESPIRATORY TRACT HAEMORRHAGE
     Dosage: 500 MILLIGRAM, TID
     Route: 048
     Dates: start: 20200204, end: 20200214

REACTIONS (5)
  - Sepsis [Fatal]
  - Interstitial lung disease [Recovering/Resolving]
  - Gastrointestinal infection [Unknown]
  - Cytokine release syndrome [Unknown]
  - Multiple organ dysfunction syndrome [Unknown]

NARRATIVE: CASE EVENT DATE: 2020
